FAERS Safety Report 15366700 (Version 1)
Quarter: 2018Q3

REPORT INFORMATION
  Report Type: Report from Study
  Country: US (occurrence: US)
  Receive Date: 20180910
  Receipt Date: 20180910
  Transmission Date: 20181010
  Serious: Yes (Other)
  Sender: FDA-Public Use
  Company Number: US-UCBSA-2018036438

PATIENT

DRUGS (2)
  1. KLONOPIN [Concomitant]
     Active Substance: CLONAZEPAM
     Indication: PRODUCT USED FOR UNKNOWN INDICATION
  2. LEVETIRACETAM. [Suspect]
     Active Substance: LEVETIRACETAM
     Indication: PRODUCT USED FOR UNKNOWN INDICATION
     Dosage: 500 MG, 4X/DAY (QID)

REACTIONS (7)
  - Intentional product misuse [Unknown]
  - Generalised tonic-clonic seizure [Unknown]
  - Asthenia [Unknown]
  - Simple partial seizures [Unknown]
  - Seizure [Unknown]
  - Drug ineffective [Unknown]
  - Malaise [Unknown]
